FAERS Safety Report 7980451-9 (Version None)
Quarter: 2011Q4

REPORT INFORMATION
  Report Type: 
  Country: None (occurrence: None)
  Receive Date: 20111214
  Receipt Date: 20111208
  Transmission Date: 20120403
  Serious: Yes (Other)
  Sender: FDA-Public Use
  Company Number: US-GLAXOSMITHKLINE-A0944364A

PATIENT
  Sex: Male

DRUGS (6)
  1. VOTRIENT [Suspect]
     Indication: RENAL CANCER
     Dosage: 800MG PER DAY
     Route: 065
     Dates: start: 20110701
  2. VITAMIN TAB [Concomitant]
  3. LOTREL [Concomitant]
  4. DILAUDID [Concomitant]
  5. HERBAL MEDICATION [Suspect]
     Indication: PRODUCT USED FOR UNKNOWN INDICATION
     Route: 065
  6. TEMAZEPAM [Concomitant]

REACTIONS (9)
  - PLEURAL EFFUSION [None]
  - DYSPEPSIA [None]
  - FEELING ABNORMAL [None]
  - ABDOMINAL DISCOMFORT [None]
  - GASTROINTESTINAL DISORDER [None]
  - NAUSEA [None]
  - VOMITING [None]
  - RETCHING [None]
  - DRUG INTERACTION [None]
